FAERS Safety Report 4810324-1 (Version None)
Quarter: 2005Q4

REPORT INFORMATION
  Report Type: 
  Country: None (occurrence: None)
  Receive Date: 20051026
  Receipt Date: 20051018
  Transmission Date: 20060501
  Serious: Yes (Other)
  Sender: FDA-Public Use
  Company Number: US-ROCHE-421804

PATIENT
  Age: 55 Year
  Sex: Female

DRUGS (8)
  1. PEGASYS [Suspect]
     Dosage: ROUTE REPORTED AS INJ (INJECTABLE).
     Route: 050
     Dates: start: 20050415, end: 20050515
  2. COPEGUS [Suspect]
     Route: 048
     Dates: start: 20050415, end: 20050515
  3. PROZAC [Concomitant]
     Indication: DEPRESSION
     Route: 048
  4. CLONIDINE [Concomitant]
     Indication: HYPERTENSION
     Route: 048
  5. LOPRESSOR [Concomitant]
     Indication: HYPERTENSION
     Route: 048
  6. ZESTRIL [Concomitant]
     Indication: HYPERTENSION
     Route: 048
  7. OXYCODONE [Concomitant]
     Indication: PAIN
     Route: 048
  8. VICOPROFEN [Concomitant]
     Indication: PAIN
     Route: 048

REACTIONS (12)
  - AGGRESSION [None]
  - ALOPECIA [None]
  - AMNESIA [None]
  - BALANCE DISORDER [None]
  - BONE MARROW FAILURE [None]
  - CARDIOVASCULAR DISORDER [None]
  - DISTURBANCE IN ATTENTION [None]
  - FALL [None]
  - HALLUCINATION, AUDITORY [None]
  - RIB FRACTURE [None]
  - SCHIZOPHRENIA [None]
  - SUICIDE ATTEMPT [None]
